FAERS Safety Report 17380322 (Version 1)
Quarter: 2020Q1

REPORT INFORMATION
  Report Type: Report from Study
  Country: GB (occurrence: GB)
  Receive Date: 20200206
  Receipt Date: 20200206
  Transmission Date: 20200409
  Serious: Yes (Hospitalization)
  Sender: FDA-Public Use
  Company Number: NVSC2020GB021326

PATIENT
  Sex: Female

DRUGS (2)
  1. COSENTYX [Suspect]
     Active Substance: SECUKINUMAB
     Dosage: 150 MG, QMO
     Route: 065
     Dates: start: 20200117
  2. COSENTYX [Suspect]
     Active Substance: SECUKINUMAB
     Indication: PSORIATIC ARTHROPATHY
     Dosage: 150 MG, QW (FROM WEEKS 0 TO 4 THERE AFTER MONTHLY)
     Route: 065
     Dates: start: 20190304

REACTIONS (4)
  - Lower respiratory tract infection [Unknown]
  - Spinal disorder [Unknown]
  - Dyspnoea [Unknown]
  - Chest pain [Unknown]
